FAERS Safety Report 23603527 (Version 3)
Quarter: 2024Q2

REPORT INFORMATION
  Report Type: Spontaneous
  Country: PL (occurrence: PL)
  Receive Date: 20240307
  Receipt Date: 20240403
  Transmission Date: 20240715
  Serious: Yes (Life-Threatening, Hospitalization, Other)
  Sender: FDA-Public Use
  Company Number: PL-EMA-DD-20191004-khare_i-101259

PATIENT
  Age: 49 Year
  Sex: Male

DRUGS (40)
  1. CYTARABINE [Suspect]
     Active Substance: CYTARABINE
     Indication: Diffuse large B-cell lymphoma
     Dosage: UNK
     Route: 065
     Dates: start: 201402
  2. CYTARABINE [Suspect]
     Active Substance: CYTARABINE
     Indication: Diffuse large B-cell lymphoma stage IV
     Dosage: UNK
     Route: 065
  3. DOXORUBICIN [Suspect]
     Active Substance: DOXORUBICIN
     Indication: Diffuse large B-cell lymphoma
     Dosage: 8 CYCLES, RCHOP THERAPY; IMMUNOCHEMOTHERAPY-100 MG/DAY
     Route: 065
  4. DEXAMETHASONE [Suspect]
     Active Substance: DEXAMETHASONE
     Indication: Diffuse large B-cell lymphoma
     Dosage: UNK
     Route: 065
     Dates: start: 201402
  5. ETOPOSIDE [Suspect]
     Active Substance: ETOPOSIDE
     Indication: Diffuse large B-cell lymphoma stage IV
     Dosage: UNK
     Route: 065
  6. CYCLOPHOSPHAMIDE [Suspect]
     Active Substance: CYCLOPHOSPHAMIDE
     Indication: Diffuse large B-cell lymphoma
     Dosage: 8 CYCLES, RCHOP THERAPY BETWEEN JANUARY AND JUNE 2013 ; IMMUNOCHEMOTHERAPY
     Route: 065
  7. IFOSFAMIDE [Suspect]
     Active Substance: IFOSFAMIDE
     Indication: Diffuse large B-cell lymphoma
     Route: 065
  8. IFOSFAMIDE [Suspect]
     Active Substance: IFOSFAMIDE
     Indication: Diffuse large B-cell lymphoma stage IV
     Dosage: UNK
     Route: 065
  9. METHOTREXATE [Suspect]
     Active Substance: METHOTREXATE
     Indication: Diffuse large B-cell lymphoma stage IV
     Dosage: UNK
     Route: 065
  10. METHOTREXATE [Suspect]
     Active Substance: METHOTREXATE
     Indication: Diffuse large B-cell lymphoma
     Dosage: 8 CYCLES, RCHOP THERAPY BETWEEN JANUARY AND JUNE 2013
     Route: 065
  11. DOXORUBICIN [Suspect]
     Active Substance: DOXORUBICIN
     Indication: Diffuse large B-cell lymphoma
     Dosage: IMMUNOCHEMOTHERAPY-100 MG/DAY
     Route: 065
  12. OFATUMUMAB [Suspect]
     Active Substance: OFATUMUMAB
     Indication: Diffuse large B-cell lymphoma stage IV
     Dosage: UNK
     Route: 065
  13. PREDNISOLONE [Suspect]
     Active Substance: PREDNISOLONE
     Indication: Diffuse large B-cell lymphoma
     Dosage: 8 CYCLES, RCHOP THERAPY BETWEEN JANUARY AND JUNE 2013
     Route: 065
  14. PLATINOL [Suspect]
     Active Substance: CISPLATIN
     Indication: Diffuse large B-cell lymphoma
     Dosage: UNK
     Route: 065
     Dates: start: 201402
  15. PREDNISONE [Suspect]
     Active Substance: PREDNISONE
     Indication: Diffuse large B-cell lymphoma
     Dosage: 100MG/DAY
     Route: 065
  16. RITUXIMAB [Suspect]
     Active Substance: RITUXIMAB
     Indication: Diffuse large B-cell lymphoma
     Dosage: 8 CYCLES, RCHOP THERAPY BETWEEN JANUARY AND JUNE 2013; IMMUNOCHEMOTHERAPY
     Route: 065
  17. VINBLASTINE [Suspect]
     Active Substance: VINBLASTINE
     Indication: Diffuse large B-cell lymphoma
     Dosage: IMMUNOCHEMOTHERAPY-10MG/DAY
     Route: 065
  18. VINCRISTINE [Suspect]
     Active Substance: VINCRISTINE
     Indication: Diffuse large B-cell lymphoma
     Dosage: 8 CYCLES, RCHOP THERAPY BETWEEN JANUARY AND JUNE 2013
     Route: 065
  19. BENDAMUSTINE [Concomitant]
     Active Substance: BENDAMUSTINE
     Dosage: BETWEEN JULY AND OCTOBER 2016, FOUR CYCLES ON D1 AND D2
     Route: 065
  20. BENDAMUSTINE [Concomitant]
     Active Substance: BENDAMUSTINE
     Dosage: BETWEEN JULY AND OCTOBER 2016, FOUR CYCLES ON D1 AND D2
     Route: 065
  21. BENDAMUSTINE [Concomitant]
     Active Substance: BENDAMUSTINE
     Dosage: BETWEEN JULY AND OCTOBER 2016, FOUR CYCLES ON D1 AND D2
     Route: 065
  22. BENDAMUSTINE [Concomitant]
     Active Substance: BENDAMUSTINE
     Indication: Diffuse large B-cell lymphoma
     Dosage: CONDITIONING REGIMEN
     Route: 065
  23. BENDAMUSTINE [Concomitant]
     Active Substance: BENDAMUSTINE
     Dosage: CONDITIONING REGIMEN
     Route: 065
  24. BENDAMUSTINE [Concomitant]
     Active Substance: BENDAMUSTINE
     Dosage: CONDITIONING REGIMEN
     Route: 065
  25. BENDAMUSTINE [Concomitant]
     Active Substance: BENDAMUSTINE
     Indication: Allogenic stem cell transplantation
  26. BENDAMUSTINE [Concomitant]
     Active Substance: BENDAMUSTINE
     Indication: Allogenic stem cell transplantation
  27. BENDAMUSTINE [Concomitant]
     Active Substance: BENDAMUSTINE
     Indication: Allogenic stem cell transplantation
  28. CARBOPLATIN [Concomitant]
     Active Substance: CARBOPLATIN
     Indication: Diffuse large B-cell lymphoma
     Dosage: UNK
     Route: 065
  29. CYCLOSPORINE [Concomitant]
     Active Substance: CYCLOSPORINE
     Indication: Prophylaxis against graft versus host disease
     Dosage: UNK
     Route: 065
  30. MELPHALAN [Concomitant]
     Active Substance: MELPHALAN
     Indication: Allogenic stem cell transplantation
     Dosage: UNK
     Route: 065
  31. MYCOPHENOLATE MOFETIL [Concomitant]
     Active Substance: MYCOPHENOLATE MOFETIL
     Indication: Acute motor-sensory axonal neuropathy
     Dosage: UNK
     Route: 042
  32. PIXANTRONUM [Concomitant]
     Indication: Diffuse large B-cell lymphoma
     Dosage: UNK
     Route: 065
  33. PIXANTRONUM [Concomitant]
     Dosage: UNK
     Route: 065
  34. PIXANTRONUM [Concomitant]
     Dosage: UNK
     Route: 065
  35. PIXANTRONUM [Concomitant]
     Route: 065
  36. PIXANTRONUM [Concomitant]
     Route: 065
  37. PIXANTRONUM [Concomitant]
     Route: 065
  38. PIXANTRONUM [Concomitant]
     Route: 065
  39. PIXANTRONUM [Concomitant]
     Route: 065
  40. PIXANTRONUM [Concomitant]
     Route: 065

REACTIONS (10)
  - Anaphylactic shock [Unknown]
  - Septic shock [Unknown]
  - Diffuse large B-cell lymphoma [Unknown]
  - Disease progression [Unknown]
  - Malignant neoplasm progression [Unknown]
  - Febrile neutropenia [Unknown]
  - Pneumonia [Unknown]
  - Therapy partial responder [Unknown]
  - Malignant neoplasm progression [Unknown]
  - Product use in unapproved indication [Unknown]
